FAERS Safety Report 7673909-3 (Version None)
Quarter: 2011Q3

REPORT INFORMATION
  Report Type: 
  Country: None (occurrence: None)
  Receive Date: 20110810
  Receipt Date: 20110404
  Transmission Date: 20111222
  Serious: No
  Sender: FDA-Public Use
  Company Number: US-GLAXOSMITHKLINE-A0921295A

PATIENT
  Age: 78 Year
  Sex: Female

DRUGS (3)
  1. ENBREL [Concomitant]
  2. COUMADIN [Concomitant]
  3. PAXIL [Suspect]
     Indication: PRODUCT USED FOR UNKNOWN INDICATION
     Dosage: 20MG PER DAY
     Route: 048
     Dates: start: 20050101, end: 20110402

REACTIONS (1)
  - NAUSEA [None]
